FAERS Safety Report 16075869 (Version 1)
Quarter: 2019Q1

REPORT INFORMATION
  Report Type: Spontaneous
  Country: NO (occurrence: NO)
  Receive Date: 20190315
  Receipt Date: 20190315
  Transmission Date: 20190418
  Serious: Yes (Other)
  Sender: FDA-Public Use
  Company Number: NO-ACCORD-112916

PATIENT
  Age: 48 Year
  Sex: Female

DRUGS (5)
  1. TRIOBE [Concomitant]
     Dosage: STRENGTH 0.5 MG+0.8 MG+3 MG
     Route: 048
  2. RIBOCICLIB. [Suspect]
     Active Substance: RIBOCICLIB
     Indication: BREAST CANCER METASTATIC
     Dosage: DOSING 400 MG, NOT FURTHER SPECIFIED
     Dates: start: 20180219, end: 20180918
  3. SERTRALINE [Suspect]
     Active Substance: SERTRALINE HYDROCHLORIDE
     Indication: DEPRESSION
     Dosage: DOSING 50 MG, NOT FURTHER SPECIFIED
     Dates: start: 20180727
  4. FEMAR [Concomitant]
     Active Substance: LETROZOLE
     Indication: BREAST CANCER METASTATIC
     Dosage: STRENGTH 2.5 MG,DOSING 2.5 MG, NOT FURTHER SPECIFIED
     Route: 048
  5. LEVAXIN [Concomitant]
     Active Substance: LEVOTHYROXINE SODIUM
     Dosage: STRENGTH 125 MICROGRAM,DOSING 125 MICROGRAM, NOT FURTHER SPECIFIED
     Route: 048

REACTIONS (1)
  - Hepatic steatosis [Recovering/Resolving]

NARRATIVE: CASE EVENT DATE: 201808
